FAERS Safety Report 7718753-3 (Version None)
Quarter: 2011Q3

REPORT INFORMATION
  Report Type: 
  Country: None (occurrence: None)
  Receive Date: 20110830
  Receipt Date: 20110826
  Transmission Date: 20111222
  Serious: Yes (Other)
  Sender: FDA-Public Use
  Company Number: JP-PFIZER INC-2011188531

PATIENT
  Age: 10 Year
  Sex: Female
  Weight: 27 kg

DRUGS (10)
  1. GENOTROPIN [Suspect]
     Dosage: 3.2 MG, WEEKLY
     Route: 058
     Dates: start: 20080808, end: 20081218
  2. GENOTROPIN [Suspect]
     Dosage: 4.4 MG, WEEKLY
     Route: 058
     Dates: start: 20101228, end: 20110516
  3. GENOTROPIN [Suspect]
     Dosage: 4.2 MG, WEEKLY
     Route: 058
     Dates: start: 20100202, end: 20101227
  4. GENOTROPIN [Suspect]
     Indication: BODY HEIGHT BELOW NORMAL
     Dosage: 2.6 MG, WEEKLY
     Route: 058
     Dates: start: 20060615, end: 20070621
  5. GENOTROPIN [Suspect]
     Dosage: 4 MG, WEEKLY
     Route: 058
     Dates: start: 20091030, end: 20100201
  6. GENOTROPIN [Suspect]
     Dosage: 4.8 MG, WEEKLY
     Route: 058
     Dates: start: 20110816
  7. GENOTROPIN [Suspect]
     Dosage: 4.6 MG, WEEKLY
     Route: 058
     Dates: start: 20110517, end: 20110815
  8. GENOTROPIN [Suspect]
     Dosage: 2.8 MG, WEEKLY
     Route: 058
     Dates: start: 20070622, end: 20071217
  9. GENOTROPIN [Suspect]
     Dosage: 3.0 MG, WEEKLY
     Route: 058
     Dates: start: 20071218, end: 20080807
  10. GENOTROPIN [Suspect]
     Dosage: 3.0 MG, WEEKLY
     Route: 058
     Dates: start: 20081219, end: 20091029

REACTIONS (1)
  - OSTEOGENESIS IMPERFECTA [None]
